FAERS Safety Report 15007521 (Version 1)
Quarter: 2018Q2

REPORT INFORMATION
  Report Type: Spontaneous
  Country: US (occurrence: US)
  Receive Date: 20180521
  Receipt Date: 20180521
  Transmission Date: 20180711
  Serious: No
  Sender: FDA-Public Use
  Company Number: None

PATIENT
  Age: 45 Year
  Sex: Male
  Weight: 77.11 kg

DRUGS (14)
  1. RANITIDINE. [Concomitant]
     Active Substance: RANITIDINE
  2. RITALIN [Concomitant]
     Active Substance: METHYLPHENIDATE HYDROCHLORIDE
  3. ABILIFY [Suspect]
     Active Substance: ARIPIPRAZOLE
     Indication: DEPRESSION
     Dosage: ?          OTHER DOSE:5 MG PILL;?
     Route: 048
     Dates: start: 20180201, end: 20180420
  4. BUSPIRONE HCL [Concomitant]
     Active Substance: BUSPIRONE HYDROCHLORIDE
  5. ARMODAFINIL. [Concomitant]
     Active Substance: ARMODAFINIL
  6. GABAPENTIN. [Concomitant]
     Active Substance: GABAPENTIN
  7. ADDERALL [Concomitant]
     Active Substance: AMPHETAMINE ASPARTATE\AMPHETAMINE SULFATE\DEXTROAMPHETAMINE SACCHARATE\DEXTROAMPHETAMINE SULFATE
  8. CALCIUM [Concomitant]
     Active Substance: CALCIUM
  9. DULOXETINE HYDROCHLORIDE. [Concomitant]
     Active Substance: DULOXETINE HYDROCHLORIDE
  10. RITUXAN [Concomitant]
     Active Substance: RITUXIMAB
  11. FLUOXETINE HCL [Concomitant]
     Active Substance: FLUOXETINE HYDROCHLORIDE
  12. BUPROPION HYDROCHLORIDE XL [Concomitant]
     Active Substance: BUPROPION HYDROCHLORIDE
  13. CETIRIZINE HCL [Concomitant]
     Active Substance: CETIRIZINE HYDROCHLORIDE
  14. VITAMIN D3 [Concomitant]
     Active Substance: CHOLECALCIFEROL

REACTIONS (4)
  - Impulse-control disorder [None]
  - Libido increased [None]
  - Abnormal behaviour [None]
  - Hyperphagia [None]

NARRATIVE: CASE EVENT DATE: 20180410
